FAERS Safety Report 22361444 (Version 6)
Quarter: 2025Q1

REPORT INFORMATION
  Report Type: Report from Study
  Country: US (occurrence: US)
  Receive Date: 20230524
  Receipt Date: 20250210
  Transmission Date: 20250409
  Serious: Yes (Other)
  Sender: TAKEDA
  Company Number: US-TAKEDA-2020TUS022887

PATIENT
  Sex: Female

DRUGS (1)
  1. VEDOLIZUMAB [Suspect]
     Active Substance: VEDOLIZUMAB
     Indication: Colitis ulcerative

REACTIONS (12)
  - Respiratory tract oedema [Unknown]
  - Pneumonia [Unknown]
  - General symptom [Unknown]
  - Feeding disorder [Unknown]
  - Frequent bowel movements [Unknown]
  - Chest discomfort [Unknown]
  - Hypoaesthesia [Unknown]
  - Pancreatic disorder [Unknown]
  - Product dose omission issue [Unknown]
  - Malaise [Unknown]
  - Inappropriate schedule of product administration [Unknown]
  - Dyspnoea [Unknown]
